FAERS Safety Report 11860741 (Version 7)
Quarter: 2025Q4

REPORT INFORMATION
  Report Type: Spontaneous
  Country: EU (occurrence: EU)
  Receive Date: 20151222
  Receipt Date: 20251117
  Transmission Date: 20260118
  Serious: Yes (Hospitalization, Other)
  Sender: NOVARTIS
  Company Number: PHHY2015FR167359

PATIENT
  Age: 64 Year
  Sex: Female

DRUGS (6)
  1. CYCLOSPORINE [Interacting]
     Active Substance: CYCLOSPORINE
     Indication: Immunosuppressant drug therapy
     Dosage: 100 MG, QD
     Route: 065
  2. TERBINAFINE [Interacting]
     Active Substance: TERBINAFINE
     Indication: Neoscytalidium infection
     Dosage: UNK (SYSTEMIC TREATMENT)
     Route: 065
  3. TERBINAFINE [Interacting]
     Active Substance: TERBINAFINE
     Indication: Neoscytalidium infection
     Dosage: UNK (LOCAL TREATMENT)
     Route: 065
  4. TERBINAFINE [Interacting]
     Active Substance: TERBINAFINE
     Dosage: UNK
     Route: 065
  5. PREDNISOLONE [Suspect]
     Active Substance: PREDNISOLONE
     Indication: Immunosuppressant drug therapy
     Dosage: 10 MG, QD
     Route: 065
  6. PREDNISOLONE [Concomitant]
     Active Substance: PREDNISOLONE
     Indication: Immunosuppressant drug therapy
     Dosage: 10 MG, QD
     Route: 065

REACTIONS (3)
  - Neoscytalidium infection [Recovered/Resolved]
  - Renal impairment [Unknown]
  - Drug interaction [Unknown]
